FAERS Safety Report 15261794 (Version 1)
Quarter: 2018Q3

REPORT INFORMATION
  Report Type: Report from Study
  Country: US (occurrence: US)
  Receive Date: 20180809
  Receipt Date: 20180809
  Transmission Date: 20181010
  Serious: No
  Sender: FDA-Public Use
  Company Number: US-AEGERION PHARMACEUTICAL, INC-AEGR003612

PATIENT
  Age: 54 Year
  Sex: Female

DRUGS (22)
  1. JUXTAPID [Suspect]
     Active Substance: LOMITAPIDE MESYLATE
     Dosage: 20 MG, QD
     Dates: start: 20150130, end: 20151004
  2. JUXTAPID [Suspect]
     Active Substance: LOMITAPIDE MESYLATE
     Dosage: 40 MG, QD
     Dates: start: 20151005, end: 20151106
  3. CYCLOBENZAPRIN [Concomitant]
     Active Substance: CYCLOBENZAPRINE
     Indication: BACK PAIN
     Dosage: 10 MG, QD
     Route: 048
     Dates: start: 20160322
  4. OMEPRAZOLE. [Concomitant]
     Active Substance: OMEPRAZOLE
     Indication: ABDOMINAL PAIN
     Dosage: 20 MG, QD
     Route: 048
     Dates: start: 20160104
  5. ZANTAC [Concomitant]
     Active Substance: RANITIDINE HYDROCHLORIDE
     Indication: DYSPEPSIA
     Dosage: 150 MG, QD
     Route: 048
     Dates: start: 20140109
  6. JUXTAPID [Suspect]
     Active Substance: LOMITAPIDE MESYLATE
     Dosage: 10 MG, UNK
     Dates: start: 20141003, end: 20150129
  7. FENOFIBRATE. [Concomitant]
     Active Substance: FENOFIBRATE
     Indication: HYPERCHOLESTEROLAEMIA
     Dosage: 160 MG, QD
     Route: 048
     Dates: start: 20140114
  8. NIACIN. [Concomitant]
     Active Substance: NIACIN
     Indication: HYPERCHOLESTEROLAEMIA
     Dosage: 1000 MG, QD
     Route: 048
     Dates: start: 20140108
  9. KRILL OIL [Concomitant]
     Active Substance: DIETARY SUPPLEMENT
     Indication: SUPPLEMENTATION THERAPY
     Dosage: 1 TABLET, QD
     Route: 048
     Dates: start: 20140109
  10. ROSUVASTATIN. [Concomitant]
     Active Substance: ROSUVASTATIN
     Dosage: 40 MG, QD
     Route: 048
     Dates: start: 2008
  11. JUXTAPID [Suspect]
     Active Substance: LOMITAPIDE MESYLATE
     Indication: TYPE IIA HYPERLIPIDAEMIA
     Dosage: 5 MG, UNK
     Dates: start: 20130927, end: 20141002
  12. ASPIRIN                            /00002701/ [Concomitant]
     Active Substance: ASPIRIN
     Indication: PROPHYLAXIS
     Dosage: 81 MG, QD
     Route: 048
     Dates: start: 20140109
  13. OMEGA GOLD 3+6+9 [Concomitant]
     Indication: HYPERCHOLESTEROLAEMIA
     Dosage: 1000 MG, QD
     Route: 048
     Dates: start: 20140109
  14. JUXTAPID [Suspect]
     Active Substance: LOMITAPIDE MESYLATE
     Dosage: 20 MG, QD
     Route: 048
     Dates: start: 20151107, end: 20160418
  15. ATENOLOL. [Concomitant]
     Active Substance: ATENOLOL
     Indication: HYPERTENSION
     Dosage: 100 MG, BID
     Route: 048
     Dates: start: 20150916
  16. CRESTOR [Concomitant]
     Active Substance: ROSUVASTATIN CALCIUM
     Indication: HYPERCHOLESTEROLAEMIA
     Dosage: 40 MG, QD
     Route: 048
     Dates: start: 20150916
  17. CHOLESTOFF ORIGINAL [Concomitant]
     Indication: HYPERCHOLESTEROLAEMIA
     Dosage: 900 MG, QD
     Route: 048
     Dates: start: 20140109
  18. MAXZIDE [Concomitant]
     Active Substance: HYDROCHLOROTHIAZIDE\TRIAMTERENE
     Indication: HYPERTENSION
     Dosage: 37.5/25 MG, PRN
     Route: 048
     Dates: start: 20140109
  19. RANEXA [Concomitant]
     Active Substance: RANOLAZINE
     Indication: ARTERIOSCLEROSIS CORONARY ARTERY
     Dosage: 500 MG, QD
     Route: 048
     Dates: start: 20170711
  20. TRAMADOL. [Concomitant]
     Active Substance: TRAMADOL
     Indication: BACK PAIN
     Dosage: 50 MG, BID
     Route: 048
     Dates: start: 20160125
  21. LORATADINE. [Concomitant]
     Active Substance: LORATADINE
     Indication: HYPERSENSITIVITY
     Dosage: 10 MG, QD
     Route: 048
     Dates: start: 20150807
  22. PANTOPRAZOLE [Concomitant]
     Active Substance: PANTOPRAZOLE
     Indication: ABDOMINAL PAIN UPPER
     Dosage: 40 MG, QD
     Route: 048
     Dates: start: 20170828

REACTIONS (1)
  - Bronchitis [Recovered/Resolved]

NARRATIVE: CASE EVENT DATE: 20171220
